FAERS Safety Report 24972445 (Version 2)
Quarter: 2025Q3

REPORT INFORMATION
  Report Type: Report from Study
  Country: US (occurrence: None)
  Receive Date: 20250215
  Receipt Date: 20250816
  Transmission Date: 20251020
  Serious: Yes (Other)
  Sender: ALEXION PHARMACEUTICALS
  Company Number: US-AstraZeneca-2015SE08406

PATIENT
  Age: 70 Year
  Sex: Female
  Weight: 79.379 kg

DRUGS (6)
  1. NEXIUM [Suspect]
     Active Substance: ESOMEPRAZOLE MAGNESIUM
     Indication: Gastrooesophageal reflux disease
  2. NEXIUM [Suspect]
     Active Substance: ESOMEPRAZOLE MAGNESIUM
     Indication: Gastrooesophageal reflux disease
     Dosage: 40 MILLIGRAM, QD
     Dates: start: 2015
  3. AUGMENTIN [Suspect]
     Active Substance: AMOXICILLIN\CLAVULANATE POTASSIUM
     Indication: Antibiotic therapy
     Route: 065
  4. AUGMENTIN [Suspect]
     Active Substance: AMOXICILLIN\CLAVULANATE POTASSIUM
     Indication: Bronchitis
  5. AUGMENTIN [Suspect]
     Active Substance: AMOXICILLIN\CLAVULANATE POTASSIUM
     Indication: Nasopharyngitis
  6. MELATONIN [Suspect]
     Active Substance: MELATONIN
     Indication: Insomnia

REACTIONS (18)
  - Lip swelling [Recovered/Resolved]
  - Tinnitus [Not Recovered/Not Resolved]
  - Nasopharyngitis [Recovered/Resolved]
  - Bronchitis [Recovered/Resolved]
  - Dysphonia [Not Recovered/Not Resolved]
  - Deafness [Not Recovered/Not Resolved]
  - Body height decreased [Unknown]
  - Bone disorder [Not Recovered/Not Resolved]
  - Laryngeal disorder [Unknown]
  - Mental impairment [Unknown]
  - Insomnia [Not Recovered/Not Resolved]
  - Abdominal discomfort [Unknown]
  - Headache [Recovered/Resolved]
  - Abdominal pain upper [Recovered/Resolved]
  - Malaise [Recovered/Resolved]
  - Adverse event [Unknown]
  - Intentional product misuse [Unknown]
  - Product dose omission issue [Unknown]

NARRATIVE: CASE EVENT DATE: 20110101
